FAERS Safety Report 15632600 (Version 1)
Quarter: 2018Q4

REPORT INFORMATION
  Report Type: Spontaneous
  Country: US (occurrence: US)
  Receive Date: 20181119
  Receipt Date: 20181119
  Transmission Date: 20190205
  Serious: Yes (Other)
  Sender: FDA-Public Use
  Company Number: None

PATIENT
  Age: 81 Year
  Sex: Female
  Weight: 56.25 kg

DRUGS (8)
  1. ZUPLENZ [Suspect]
     Active Substance: ONDANSETRON
     Indication: METASTASIS
     Dosage: ?          OTHER FREQUENCY:AS DIRECTED;OTHER ROUTE:PLACE ON TONGUE?
     Dates: start: 20181106, end: 20181119
  2. ONDANSETRON [Concomitant]
     Active Substance: ONDANSETRON
  3. TRAVATAN Z [Concomitant]
     Active Substance: TRAVOPROST
  4. CYCLOSPORINE. [Concomitant]
     Active Substance: CYCLOSPORINE
  5. RAMIPRIL. [Concomitant]
     Active Substance: RAMIPRIL
  6. ZUPLENZ [Suspect]
     Active Substance: ONDANSETRON
     Indication: MALIGNANT PERITONEAL NEOPLASM
     Dosage: ?          OTHER FREQUENCY:AS DIRECTED;OTHER ROUTE:PLACE ON TONGUE?
     Dates: start: 20181106, end: 20181119
  7. OXYCODONE [Concomitant]
     Active Substance: OXYCODONE
  8. ZUPLENZ [Suspect]
     Active Substance: ONDANSETRON
     Indication: RETROPERITONEAL CANCER
     Dosage: ?          OTHER FREQUENCY:AS DIRECTED;OTHER ROUTE:PLACE ON TONGUE?
     Dates: start: 20181106, end: 20181119

REACTIONS (1)
  - Hospitalisation [None]

NARRATIVE: CASE EVENT DATE: 20181119
